FAERS Safety Report 7593970-4 (Version None)
Quarter: 2011Q3

REPORT INFORMATION
  Report Type: 
  Country: None (occurrence: None)
  Receive Date: 20110706
  Receipt Date: 20110622
  Transmission Date: 20111222
  Serious: Yes (Hospitalization, Other)
  Sender: FDA-Public Use
  Company Number: IL-MYLANLABS-2011S1013148

PATIENT
  Age: 13 Year
  Sex: Female
  Weight: 36 kg

DRUGS (6)
  1. SEVOFLURANE [Concomitant]
     Indication: ANAESTHESIA
     Dosage: 1.5% TO 2% IN 1:1 MIXTURE OF OXYGEN
  2. PROPOFOL [Concomitant]
     Indication: GENERAL ANAESTHESIA
  3. ULTIVA [Suspect]
     Dosage: OVER 50 MINUTES
  4. MIDAZOLAM HCL [Concomitant]
     Route: 042
  5. ROCURONIUM BROMIDE [Concomitant]
     Indication: HYPOTONIA
     Route: 042
  6. FENTANYL [Concomitant]

REACTIONS (3)
  - OVERDOSE [None]
  - SOMNOLENCE [None]
  - INCORRECT DOSE ADMINISTERED [None]
